FAERS Safety Report 17618917 (Version 1)
Quarter: 2020Q2

REPORT INFORMATION
  Report Type: Spontaneous
  Country: US (occurrence: US)
  Receive Date: 20200402
  Receipt Date: 20200402
  Transmission Date: 20200713
  Serious: Yes (Other)
  Sender: FDA-Public Use
  Company Number: US-NOVOPROD-720591

PATIENT
  Sex: Female

DRUGS (1)
  1. NOVOLOG [Suspect]
     Active Substance: INSULIN ASPART
     Indication: PRODUCT USED FOR UNKNOWN INDICATION
     Dosage: UNK
     Route: 058

REACTIONS (7)
  - Stent placement [Unknown]
  - Angioplasty [Unknown]
  - Tooth loss [Unknown]
  - Prescription drug used without a prescription [Unknown]
  - Renal disorder [Unknown]
  - Arterial occlusive disease [Unknown]
  - Retinal detachment [Unknown]
